FAERS Safety Report 9435453 (Version 1)
Quarter: 2013Q3

REPORT INFORMATION
  Report Type: Spontaneous
  Country: DK (occurrence: DK)
  Receive Date: 20130801
  Receipt Date: 20130801
  Transmission Date: 20140515
  Serious: Yes (Hospitalization)
  Sender: FDA-Public Use
  Company Number: DK-GLAXOSMITHKLINE-B0912350A

PATIENT
  Sex: Female

DRUGS (2)
  1. ZELITREX [Suspect]
     Indication: HERPES VIRUS INFECTION
     Route: 065
     Dates: start: 20100607, end: 20111104
  2. LANSOPRAZOLE [Concomitant]
     Dates: start: 201007

REACTIONS (13)
  - Type 2 diabetes mellitus [Unknown]
  - Hot flush [Recovered/Resolved]
  - Pyrexia [Unknown]
  - Arthralgia [Not Recovered/Not Resolved]
  - Fatigue [Not Recovered/Not Resolved]
  - Myalgia [Not Recovered/Not Resolved]
  - Breast pain [Unknown]
  - Abdominal pain [Unknown]
  - Insomnia [Unknown]
  - Dizziness [Unknown]
  - Headache [Unknown]
  - Nausea [Unknown]
  - Vomiting [Not Recovered/Not Resolved]
